FAERS Safety Report 8398529-7 (Version None)
Quarter: 2012Q2

REPORT INFORMATION
  Report Type: 
  Country: None (occurrence: None)
  Receive Date: 20120323
  Receipt Date: 20110106
  Transmission Date: 20120825
  Serious: Yes (Other)
  Sender: FDA-Public Use
  Company Number: 163-21880-09031924

PATIENT
  Age: 77 Year
  Sex: Male

DRUGS (5)
  1. REVLIMID [Suspect]
     Indication: MULTIPLE MYELOMA
     Dosage: 15 MG, 1 IN 1 D, PO 25 MG, 1 IN 1 D, PO 5 MG, 1 IN 1 D, PO 10 MG, 1 IN 1 D, PO 15 MG, QHS, PO
     Route: 048
     Dates: start: 20081101, end: 20090101
  2. REVLIMID [Suspect]
     Indication: MULTIPLE MYELOMA
     Dosage: 15 MG, 1 IN 1 D, PO 25 MG, 1 IN 1 D, PO 5 MG, 1 IN 1 D, PO 10 MG, 1 IN 1 D, PO 15 MG, QHS, PO
     Route: 048
     Dates: start: 20090201, end: 20090301
  3. REVLIMID [Suspect]
     Indication: MULTIPLE MYELOMA
     Dosage: 15 MG, 1 IN 1 D, PO 25 MG, 1 IN 1 D, PO 5 MG, 1 IN 1 D, PO 10 MG, 1 IN 1 D, PO 15 MG, QHS, PO
     Route: 048
     Dates: start: 20100301
  4. REVLIMID [Suspect]
     Indication: MULTIPLE MYELOMA
     Dosage: 15 MG, 1 IN 1 D, PO 25 MG, 1 IN 1 D, PO 5 MG, 1 IN 1 D, PO 10 MG, 1 IN 1 D, PO 15 MG, QHS, PO
     Route: 048
     Dates: start: 20080901, end: 20081101
  5. REVLIMID [Suspect]
     Indication: MULTIPLE MYELOMA
     Dosage: 15 MG, 1 IN 1 D, PO 25 MG, 1 IN 1 D, PO 5 MG, 1 IN 1 D, PO 10 MG, 1 IN 1 D, PO 15 MG, QHS, PO
     Route: 048
     Dates: start: 20090301, end: 20100101

REACTIONS (4)
  - MUCOUS MEMBRANE DISORDER [None]
  - THROMBOSIS [None]
  - POOR PERIPHERAL CIRCULATION [None]
  - OCULAR HYPERAEMIA [None]
